FAERS Safety Report 5001739-X (Version None)
Quarter: 2006Q2

REPORT INFORMATION
  Report Type: 
  Country: None (occurrence: None)
  Receive Date: 20060512
  Receipt Date: 20060512
  Transmission Date: 20061013
  Serious: Yes (Hospitalization)
  Sender: FDA-Public Use
  Company Number: None

PATIENT
  Age: 71 Year
  Sex: Female
  Weight: 41.6 kg

DRUGS (3)
  1. COTRIMOXAZOLE [Suspect]
     Indication: NOCARDIOSIS
     Dosage: 2 TAB BID
     Dates: start: 20051201, end: 20060301
  2. DARVOCET [Concomitant]
  3. LIDODERM [Concomitant]

REACTIONS (1)
  - HALLUCINATIONS, MIXED [None]
